FAERS Safety Report 5814015-X (Version None)
Quarter: 2008Q3

REPORT INFORMATION
  Report Type: 
  Country: None (occurrence: None)
  Receive Date: 20080717
  Receipt Date: 20080705
  Transmission Date: 20090109
  Serious: Yes (Other)
  Sender: FDA-Public Use
  Company Number: US-PFIZER INC-2007087801

PATIENT
  Sex: Male
  Weight: 77.1 kg

DRUGS (10)
  1. CHANTIX [Suspect]
     Indication: SMOKING CESSATION THERAPY
  2. CHANTIX [Suspect]
     Indication: NICOTINE DEPENDENCE
  3. LEXAPRO [Concomitant]
  4. XANAX [Concomitant]
  5. REVIA [Concomitant]
  6. TOPROL-XL [Concomitant]
  7. NORVASC [Concomitant]
  8. LIPITOR [Concomitant]
  9. CAMPRAL [Concomitant]
  10. ACETYLSALICYLIC ACID SRT [Concomitant]

REACTIONS (2)
  - DEPRESSION [None]
  - GENERALISED ANXIETY DISORDER [None]
